FAERS Safety Report 10012571 (Version 2)
Quarter: 2014Q2

REPORT INFORMATION
  Report Type: Report from Study
  Country: GB (occurrence: GB)
  Receive Date: 20140314
  Receipt Date: 20140606
  Transmission Date: 20141212
  Serious: Yes (Other)
  Sender: FDA-Public Use
  Company Number: GB-US-EMD SERONO, INC.-7274799

PATIENT
  Age: 37 Year
  Sex: Male

DRUGS (2)
  1. SAIZEN [Suspect]
     Indication: GROWTH HORMONE DEFICIENCY
     Route: 058
     Dates: start: 20110713, end: 20130501
  2. SAIZEN [Suspect]
     Route: 058
     Dates: start: 20140529

REACTIONS (2)
  - Cerebrovascular accident [Recovered/Resolved]
  - Neoplasm malignant [Unknown]
